FAERS Safety Report 10277589 (Version 2)
Quarter: 2014Q3

REPORT INFORMATION
  Report Type: Spontaneous
  Country: BR (occurrence: BR)
  Receive Date: 20140704
  Receipt Date: 20140704
  Transmission Date: 20150326
  Serious: Yes (Other)
  Sender: FDA-Public Use
  Company Number: BR-ROCHE-1429193

PATIENT
  Sex: Female
  Weight: 47.5 kg

DRUGS (1)
  1. CYMEVENE [Suspect]
     Active Substance: GANCICLOVIR
     Indication: PRODUCT USED FOR UNKNOWN INDICATION
     Dosage: FORM STRENGTH 100MG/ML.
     Route: 042

REACTIONS (3)
  - Back pain [Unknown]
  - Syncope [Unknown]
  - Visual acuity reduced [Unknown]
